FAERS Safety Report 26173519 (Version 2)
Quarter: 2025Q4

REPORT INFORMATION
  Report Type: Spontaneous
  Country: EU (occurrence: EU)
  Receive Date: 20251218
  Receipt Date: 20251230
  Transmission Date: 20260118
  Serious: Yes (Other)
  Sender: VIIV
  Company Number: EU-AEMPS-1772783

PATIENT
  Age: 63 Year
  Sex: Male

DRUGS (4)
  1. VOCABRIA [Suspect]
     Active Substance: CABOTEGRAVIR SODIUM
     Indication: HIV antibody positive
     Dosage: UNK, Q8W (EVERY 8 WEEKS)
  2. VOCABRIA [Suspect]
     Active Substance: CABOTEGRAVIR SODIUM
  3. VOCABRIA [Suspect]
     Active Substance: CABOTEGRAVIR SODIUM
  4. RILPIVIRINE [Suspect]
     Active Substance: RILPIVIRINE
     Indication: HIV antibody positive
     Dosage: UNK, Q8W (EVERY 8 WEEKS)

REACTIONS (3)
  - Dyspnoea [Recovered/Resolved]
  - Back pain [Recovered/Resolved]
  - Wheezing [Recovered/Resolved]

NARRATIVE: CASE EVENT DATE: 20251103
